FAERS Safety Report 8249684-0 (Version None)
Quarter: 2012Q1

REPORT INFORMATION
  Report Type: 
  Country: None (occurrence: None)
  Receive Date: 20120328
  Receipt Date: 20120314
  Transmission Date: 20120608
  Serious: Yes (Hospitalization)
  Sender: FDA-Public Use
  Company Number: AXC-2012-000110

PATIENT
  Age: 12 Year

DRUGS (2)
  1. ZENPEP [Suspect]
     Indication: PRODUCT USED FOR UNKNOWN INDICATION
     Dosage: 4 CAPSULES WITH MEALS, ORAL
     Route: 048
     Dates: start: 20100101, end: 20110101
  2. CREON [Suspect]
     Indication: PRODUCT USED FOR UNKNOWN INDICATION
     Dosage: 3 CAPSULES WITH MEALS, UNK
     Dates: start: 20110101

REACTIONS (3)
  - ABDOMINAL PAIN [None]
  - FLATULENCE [None]
  - DISTAL ILEAL OBSTRUCTION SYNDROME [None]
